FAERS Safety Report 6376551-X (Version None)
Quarter: 2009Q3

REPORT INFORMATION
  Report Type: 
  Country: None (occurrence: None)
  Receive Date: 20090925
  Receipt Date: 20090914
  Transmission Date: 20100115
  Serious: Yes (Other)
  Sender: FDA-Public Use
  Company Number: GB-PFIZER INC-2009267889

PATIENT
  Age: 60 Year

DRUGS (10)
  1. DOXYCYCLINE HYCLATE [Suspect]
     Indication: LOWER RESPIRATORY TRACT INFECTION
     Dosage: 1 DF, 2X/DAY
     Route: 048
     Dates: start: 20090728, end: 20090728
  2. AMLODIPINE BESILATE [Concomitant]
  3. ACETYLSALICYLIC ACID [Concomitant]
  4. BISOPROLOL [Concomitant]
  5. MONTELUKAST [Concomitant]
  6. MST [Concomitant]
  7. PREDNISOLONE [Concomitant]
  8. RAMIPRIL [Concomitant]
  9. SALBUTAMOL [Concomitant]
  10. TIOTROPIUM BROMIDE [Concomitant]

REACTIONS (8)
  - CANDIDIASIS [None]
  - DYSPNOEA [None]
  - GINGIVITIS [None]
  - GLOSSODYNIA [None]
  - HYPERSENSITIVITY [None]
  - MOUTH ULCERATION [None]
  - ORAL PAIN [None]
  - SWOLLEN TONGUE [None]
